FAERS Safety Report 9419584 (Version 1)
Quarter: 2013Q3

REPORT INFORMATION
  Report Type: Spontaneous
  Country: CO (occurrence: CO)
  Receive Date: 20130725
  Receipt Date: 20130725
  Transmission Date: 20140515
  Serious: Yes (Other)
  Sender: FDA-Public Use
  Company Number: CO-PFIZER INC-2013217102

PATIENT
  Age: 39 Year
  Sex: Male

DRUGS (11)
  1. LYRICA [Suspect]
     Indication: NEURALGIA
     Dosage: 150 MG, AS NEEDED
     Route: 048
     Dates: start: 201107
  2. LYRICA [Suspect]
     Dosage: 150 MG, 2X/DAY
     Route: 048
     Dates: start: 201304
  3. BUSCOPAN COMPOSITUM [Concomitant]
     Indication: VOMITING
     Dosage: 20 MG, 3X/DAY
     Route: 058
     Dates: start: 201304
  4. BUSCOPAN COMPOSITUM [Concomitant]
     Indication: NAUSEA
  5. ACETAMINOPHEN [Concomitant]
     Indication: PAIN
     Dosage: 500 MG, 6 TIMES PER DAY
     Route: 048
     Dates: start: 201304
  6. OMEPRAZOL [Concomitant]
     Indication: PROPHYLAXIS AGAINST GASTROINTESTINAL ULCER
     Dosage: 150 MG, 1X/DAY
     Route: 048
     Dates: start: 201304
  7. FUROSEMIDE [Concomitant]
     Indication: FLUID RETENTION
     Dosage: 40 MG, 1X/DAY
     Route: 048
     Dates: start: 201304
  8. SPIRONOLACTONE [Concomitant]
     Dosage: 25 MG, 1X/DAY
     Route: 048
     Dates: start: 201304
  9. POLYETHYLENE GLYCOL [Concomitant]
     Indication: CONSTIPATION
     Dosage: 20 MG, 1X/DAY
     Route: 048
     Dates: start: 201304
  10. CLONAZEPAM [Concomitant]
     Indication: INSOMNIA
     Dosage: UNKNOWN DOSE ONCE DAILY
     Route: 048
     Dates: start: 201306
  11. FENTANYL [Concomitant]
     Indication: PAIN
     Dosage: 100 MG,EVERY 72 HOURS
     Route: 061
     Dates: start: 201304

REACTIONS (3)
  - Hepatic cancer [Not Recovered/Not Resolved]
  - Hypersomnia [Not Recovered/Not Resolved]
  - Aphasia [Not Recovered/Not Resolved]
